FAERS Safety Report 5968543-7 (Version None)
Quarter: 2008Q4

REPORT INFORMATION
  Report Type: 
  Country: None (occurrence: None)
  Receive Date: 20081126
  Receipt Date: 20081121
  Transmission Date: 20090506
  Serious: Yes (Death, Life-Threatening, Hospitalization, Other)
  Sender: FDA-Public Use
  Company Number: GB-ABBOTT-08P-167-0488973-00

PATIENT
  Age: 94 Year
  Sex: Female

DRUGS (11)
  1. IBUPROFEN TABLETS [Suspect]
     Indication: OSTEOARTHRITIS
     Dates: start: 20080816, end: 20080820
  2. DICLOFENAC SODIUM [Suspect]
     Indication: OSTEOARTHRITIS
     Dates: start: 20080820, end: 20080905
  3. ACETYLSALICYLIC ACID SRT [Concomitant]
     Indication: PROPHYLAXIS
     Dosage: LONG TERM USE
     Dates: start: 20080905
  4. PARACETAMOL [Concomitant]
     Indication: PAIN
  5. FERROUS SULFATE [Concomitant]
     Indication: DRUG USE FOR UNKNOWN INDICATION
  6. CEPHALEXIN MONOHYDRATE [Concomitant]
     Indication: DRUG USE FOR UNKNOWN INDICATION
     Dates: start: 20080816, end: 20080822
  7. TRAMADOL HCL [Concomitant]
     Indication: DRUG USE FOR UNKNOWN INDICATION
     Dates: start: 20080821, end: 20080916
  8. BENDROFLUMETHIAZIDE [Concomitant]
     Indication: HYPERTENSION
     Dosage: 2-5 MG
     Dates: end: 20080905
  9. NIFEDIPINE [Concomitant]
     Indication: HYPERTENSION
     Dates: end: 20080905
  10. ALENDRONATE SODIUM [Concomitant]
     Indication: DRUG USE FOR UNKNOWN INDICATION
     Dates: end: 20080909
  11. DALTEPARIN SODIUM [Concomitant]
     Indication: THROMBOSIS PROPHYLAXIS
     Dates: start: 20080816, end: 20080905

REACTIONS (2)
  - GASTROINTESTINAL HAEMORRHAGE [None]
  - MELAENA [None]
